FAERS Safety Report 19234315 (Version 4)
Quarter: 2021Q4

REPORT INFORMATION
  Report Type: Report from Study
  Country: US (occurrence: US)
  Receive Date: 20210508
  Receipt Date: 20211021
  Transmission Date: 20220303
  Serious: Yes (Life-Threatening, Hospitalization)
  Sender: FDA-Public Use
  Company Number: US-BAXTER-2021BAX010038

PATIENT
  Age: 54 Year
  Sex: Female
  Weight: 52.9 kg

DRUGS (3)
  1. DOXIL [Suspect]
     Active Substance: DOXORUBICIN HYDROCHLORIDE
     Indication: Ovarian cancer
     Dosage: ONCE PER EACH 28-DAY CYCLE, MOST RECENT DOSE PRIOR TO SAE
     Route: 042
     Dates: start: 20210406, end: 20210406
  2. ELIQUIS [Concomitant]
     Active Substance: APIXABAN
     Indication: Pulmonary embolism
     Route: 065
     Dates: start: 20210309
  3. GLYBURIDE\METFORMIN [Concomitant]
     Active Substance: GLYBURIDE\METFORMIN
     Indication: Type 2 diabetes mellitus
     Route: 065
     Dates: start: 20200907

REACTIONS (3)
  - Intestinal obstruction [Recovered/Resolved]
  - Neutropenia [Recovered/Resolved]
  - Overdose [Recovered/Resolved with Sequelae]

NARRATIVE: CASE EVENT DATE: 20210407
